FAERS Safety Report 15135400 (Version 1)
Quarter: 2018Q3

REPORT INFORMATION
  Report Type: Spontaneous
  Country: US (occurrence: US)
  Receive Date: 20180616
  Receipt Date: 20180616
  Transmission Date: 20181010
  Serious: Yes (Other)
  Sender: FDA-Public Use
  Company Number: None

PATIENT
  Age: 75 Year
  Sex: Female
  Weight: 66.68 kg

DRUGS (10)
  1. HYDROQUINONE 4% [Suspect]
     Active Substance: HYDROQUINONE
     Indication: SKIN DEPIGMENTATION
     Dosage: ON THE SKIN
     Route: 061
     Dates: start: 20180615, end: 20180616
  2. BENAZEPRIL [Concomitant]
     Active Substance: BENAZEPRIL HYDROCHLORIDE
  3. SYNTHROID [Concomitant]
     Active Substance: LEVOTHYROXINE SODIUM
  4. METFORMIN [Concomitant]
     Active Substance: METFORMIN HYDROCHLORIDE
  5. ATORVASTATIN [Concomitant]
     Active Substance: ATORVASTATIN
  6. LUMIGAN [Concomitant]
     Active Substance: BIMATOPROST
  7. COQ10 [Concomitant]
     Active Substance: UBIDECARENONE
  8. HYDROQUINONE 4% [Suspect]
     Active Substance: HYDROQUINONE
     Indication: CHLOASMA
     Dosage: ON THE SKIN
     Route: 061
     Dates: start: 20180615, end: 20180616
  9. VITAMIN B12 [Concomitant]
     Active Substance: CYANOCOBALAMIN
  10. MULTIPLE VITAMIN [Concomitant]
     Active Substance: VITAMINS

REACTIONS (1)
  - Application site pain [None]

NARRATIVE: CASE EVENT DATE: 20180616
